FAERS Safety Report 12232763 (Version 1)
Quarter: 2016Q2

REPORT INFORMATION
  Report Type: Other
  Country: JP (occurrence: JP)
  Receive Date: 20160402
  Receipt Date: 20160402
  Transmission Date: 20160815
  Serious: Yes (Other)
  Sender: FDA-Public Use
  Company Number: JP-LUPIN PHARMACEUTICALS INC.-2016-00523

PATIENT
  Age: 47 Year
  Sex: Male

DRUGS (8)
  1. ADEFOVIR [Concomitant]
     Active Substance: ADEFOVIR
     Route: 065
     Dates: start: 20140126
  2. LAMIVUDINE. [Suspect]
     Active Substance: LAMIVUDINE
     Route: 065
     Dates: start: 20140126
  3. INTERFERON ALFA NOS [Concomitant]
     Active Substance: INTERFERON ALFA-2A OR INTERFERON ALFA-2B
     Indication: CHRONIC HEPATITIS B
     Dosage: 300 MU/MG
     Route: 065
     Dates: start: 200510, end: 200608
  4. ADEFOVIR [Concomitant]
     Active Substance: ADEFOVIR
     Indication: CHRONIC HEPATITIS B
     Route: 065
     Dates: start: 200609, end: 201311
  5. LAMIVUDINE. [Suspect]
     Active Substance: LAMIVUDINE
     Indication: CHRONIC HEPATITIS B
     Route: 065
     Dates: start: 200409, end: 201311
  6. ENTECAVIR. [Concomitant]
     Active Substance: ENTECAVIR
     Indication: CHRONIC HEPATITIS B
     Route: 065
     Dates: start: 20140126
  7. URSODEOXYCHOLIC ACID [Concomitant]
     Active Substance: URSODIOL
     Indication: PRODUCT USED FOR UNKNOWN INDICATION
     Route: 065
  8. PITAVASTATIN CALCIUM [Concomitant]
     Active Substance: PITAVASTATIN CALCIUM
     Indication: PRODUCT USED FOR UNKNOWN INDICATION
     Route: 065

REACTIONS (1)
  - Rhabdomyolysis [Unknown]
